FAERS Safety Report 7682451-5 (Version None)
Quarter: 2011Q3

REPORT INFORMATION
  Report Type: 
  Country: None (occurrence: None)
  Receive Date: 20110810
  Receipt Date: 20110804
  Transmission Date: 20111222
  Serious: Yes (Other)
  Sender: FDA-Public Use
  Company Number: LEO-2011-00578

PATIENT
  Age: 7 Year
  Sex: Female

DRUGS (1)
  1. INNOHEP [Suspect]
     Indication: PRODUCT USED FOR UNKNOWN INDICATION

REACTIONS (5)
  - MEDICAL DEVICE COMPLICATION [None]
  - OFF LABEL USE [None]
  - SKIN NECROSIS [None]
  - VENOUS THROMBOSIS [None]
  - ARTERIAL THROMBOSIS [None]
